FAERS Safety Report 8576844-1 (Version None)
Quarter: 2012Q3

REPORT INFORMATION
  Report Type: 
  Country: None (occurrence: None)
  Receive Date: 20120807
  Receipt Date: 20120723
  Transmission Date: 20120928
  Serious: Yes (Hospitalization)
  Sender: FDA-Public Use
  Company Number: US-US-EMD SERONO, INC.-7149010

PATIENT
  Age: 40 Year
  Sex: Female

DRUGS (2)
  1. CLOMIPHENE CITRATE [Suspect]
     Indication: INFERTILITY FEMALE
  2. CLOMIPHENE CITRATE [Suspect]
     Indication: OVULATION INDUCTION

REACTIONS (1)
  - HETEROTOPIC PREGNANCY [None]
